FAERS Safety Report 12757602 (Version 1)
Quarter: 2016Q3

REPORT INFORMATION
  Report Type: Spontaneous
  Country: CA (occurrence: CA)
  Receive Date: 20160919
  Receipt Date: 20160919
  Transmission Date: 20161109
  Serious: Yes (Other)
  Sender: FDA-Public Use
  Company Number: CA-009507513-1609CAN007766

PATIENT
  Age: 64 Year
  Sex: Female

DRUGS (4)
  1. BETAMETHASONE DIPROPIONATE (+) CALCIPOTRIENE [Suspect]
     Active Substance: BETAMETHASONE DIPROPIONATE\CALCIPOTRIENE
     Indication: PUSTULAR PSORIASIS
     Dosage: UNK, BID
     Route: 061
  2. BETAMETHASONE DIPROPIONATE. [Suspect]
     Active Substance: BETAMETHASONE DIPROPIONATE
     Indication: PUSTULAR PSORIASIS
     Dosage: UNK, BID
     Route: 061
  3. BETAMETHASONE DIPROPIONATE (+) CALCIPOTRIENE [Suspect]
     Active Substance: BETAMETHASONE DIPROPIONATE\CALCIPOTRIENE
     Dosage: UNK, QD
     Route: 061
  4. BETAMETHASONE DIPROPIONATE (+) CALCIPOTRIENE [Suspect]
     Active Substance: BETAMETHASONE DIPROPIONATE\CALCIPOTRIENE
     Dosage: UNK, BID
     Route: 061

REACTIONS (2)
  - Chorioretinopathy [Recovered/Resolved]
  - Drug ineffective [Unknown]
